FAERS Safety Report 20365076 (Version 2)
Quarter: 2022Q1

REPORT INFORMATION
  Report Type: Spontaneous
  Country: DE (occurrence: DE)
  Receive Date: 20220122
  Receipt Date: 20220208
  Transmission Date: 20220424
  Serious: Yes (Death, Life-Threatening, Hospitalization)
  Sender: FDA-Public Use
  Company Number: None

PATIENT
  Age: 80 Year
  Sex: Female
  Weight: 71 kg

DRUGS (26)
  1. AMLODIPINE BESYLATE [Suspect]
     Active Substance: AMLODIPINE BESYLATE
     Indication: Product used for unknown indication
     Dosage: 5 DF, BID(ONCE IN THE MORNING, ONCE IN THE EVENING)
     Route: 065
     Dates: start: 200803
  2. LEVOTHYROXINE SODIUM [Suspect]
     Active Substance: LEVOTHYROXINE SODIUM
     Indication: Product used for unknown indication
     Dosage: UNK
     Route: 065
     Dates: start: 2014, end: 2016
  3. PREDNISOLONE [Suspect]
     Active Substance: PREDNISOLONE
     Indication: Product used for unknown indication
     Dosage: UNK
     Route: 065
  4. AMLODIPINE [Suspect]
     Active Substance: AMLODIPINE BESYLATE
     Indication: Product used for unknown indication
     Dosage: 5 MG, BID STOPPED ON 12 JUN 2018, ONGOING AT DISCHARGE FROM REHABILITATION, (8 A.M AND 6 P.M)
     Route: 048
     Dates: start: 20180523
  5. BISOPROLOL FUMARATE\HYDROCHLOROTHIAZIDE [Suspect]
     Active Substance: BISOPROLOL FUMARATE\HYDROCHLOROTHIAZIDE
     Indication: Product used for unknown indication
     Dosage: UNK
     Route: 065
     Dates: start: 2014, end: 2018
  6. VALSARTAN [Suspect]
     Active Substance: VALSARTAN
     Indication: Product used for unknown indication
     Route: 065
     Dates: start: 201702, end: 2018
  7. IBUPROFEN [Concomitant]
     Active Substance: IBUPROFEN
     Indication: Product used for unknown indication
     Dosage: UNK, BID (1X 400 , 2X DAILY (MORNING AND EVENING))
     Route: 065
  8. HYDROCHLOROTHIAZIDE [Concomitant]
     Active Substance: HYDROCHLOROTHIAZIDE
     Indication: Product used for unknown indication
     Dosage: 25 MG, QD (HALF TABLET OF 25 MG)
     Route: 048
     Dates: start: 20180504, end: 20180524
  9. TAVOR [Concomitant]
     Indication: Product used for unknown indication
     Dosage: UNK (1.0)
     Route: 065
     Dates: start: 201902
  10. LEVOTHYROXINE SODIUM [Concomitant]
     Active Substance: LEVOTHYROXINE SODIUM
     Indication: Product used for unknown indication
     Dosage: UNK (125)
     Route: 065
     Dates: start: 2016
  11. EUTHYROX [Concomitant]
     Active Substance: LEVOTHYROXINE SODIUM
     Indication: Product used for unknown indication
     Dosage: UNK, QD (1X 125, 1X DAILY (MORNING))
     Route: 065
  12. FENTANYL [Concomitant]
     Active Substance: FENTANYL
     Indication: Product used for unknown indication
     Dosage: 12 UG/H
     Route: 065
     Dates: start: 201903
  13. HALOPERIDOL [Concomitant]
     Active Substance: HALOPERIDOL
     Indication: Product used for unknown indication
     Dosage: 30 ML
     Route: 065
     Dates: start: 201902
  14. PANTOPRAZOLE [Concomitant]
     Active Substance: PANTOPRAZOLE
     Indication: Product used for unknown indication
     Dosage: UNK, QD (1X 40)
     Route: 065
  15. FUROSEMIDE [Concomitant]
     Active Substance: FUROSEMIDE
     Indication: Product used for unknown indication
     Dosage: 40 MG, BID
     Route: 065
     Dates: start: 201903
  16. HYDROMORPHONE [Concomitant]
     Active Substance: HYDROMORPHONE
     Indication: Product used for unknown indication
     Dosage: 2 MG
     Route: 065
     Dates: start: 201902
  17. BISOPROLOL FUMARATE\HYDROCHLOROTHIAZIDE [Concomitant]
     Active Substance: BISOPROLOL FUMARATE\HYDROCHLOROTHIAZIDE
     Indication: Product used for unknown indication
     Dosage: UNK, QD ( HALFX 10/25, 1X DAILY (MORNING))
     Route: 065
     Dates: start: 201302
  18. ADVITAN [Concomitant]
     Indication: Product used for unknown indication
     Dosage: UNK
     Route: 065
     Dates: start: 2018
  19. ACETAMINOPHEN [Concomitant]
     Active Substance: ACETAMINOPHEN
     Indication: Product used for unknown indication
     Dosage: 1000 MG
     Route: 065
     Dates: start: 201903
  20. MIDAZOLAM [Concomitant]
     Active Substance: MIDAZOLAM
     Indication: Product used for unknown indication
     Dosage: UNK
     Route: 065
     Dates: start: 201903
  21. Sodium Hydrogen Carbonate, Potassium Chloride, Mac [Concomitant]
     Indication: Product used for unknown indication
     Dosage: UNK (POWDER)
     Route: 065
     Dates: start: 201902
  22. FERROUS GLUCONATE [Concomitant]
     Active Substance: FERROUS GLUCONATE
     Indication: Product used for unknown indication
     Dosage: 1 DF, QD (1X DAILY (MORNING)
     Route: 065
  23. DIGITOXIN [Concomitant]
     Active Substance: DIGITOXIN
     Indication: Product used for unknown indication
     Dosage: UNK (0.07)
     Route: 065
     Dates: start: 201901
  24. MOMETASONE [Concomitant]
     Active Substance: MOMETASONE
     Indication: Product used for unknown indication
     Dosage: 1 MG/G
     Route: 065
  25. BISOPROLOL [Concomitant]
     Active Substance: BISOPROLOL
     Indication: Product used for unknown indication
     Dosage: 5 MG, QD ( STOOPED ON 12 JUN 2018 BUT ONGOING AT DISCHARGE FROM REHABILITATION
     Route: 048
     Dates: start: 20180524
  26. BUSPIRONE KENT [Concomitant]
     Indication: Product used for unknown indication
     Dosage: 5 MG, QD ( STOOPED ON 12 JUN 2018 BUT ONGOING AT DISCHARGE FROM?REHABILITATION
     Route: 048
     Dates: start: 20180524

REACTIONS (9)
  - Renal cancer [Fatal]
  - Metastases to central nervous system [Unknown]
  - Clear cell renal cell carcinoma [Fatal]
  - Metastases to lung [Fatal]
  - Suicidal ideation [Fatal]
  - Adenoma benign [Recovered/Resolved]
  - Renal neoplasm [Fatal]
  - Brain oedema [Unknown]
  - Metastatic renal cell carcinoma [Not Recovered/Not Resolved]

NARRATIVE: CASE EVENT DATE: 20080101
